FAERS Safety Report 16126327 (Version 2)
Quarter: 2019Q2

REPORT INFORMATION
  Report Type: Spontaneous
  Country: FR (occurrence: FR)
  Receive Date: 20190328
  Receipt Date: 20190628
  Transmission Date: 20190711
  Serious: Yes (Other)
  Sender: FDA-Public Use
  Company Number: FR-AMGEN-FRASP2019045168

PATIENT
  Age: 67 Year
  Sex: Female
  Weight: 63 kg

DRUGS (7)
  1. PROLIA [Suspect]
     Active Substance: DENOSUMAB
     Indication: PRODUCT USED FOR UNKNOWN INDICATION
     Dosage: UNK UNK, Q6MO
     Route: 058
     Dates: start: 20140201, end: 20190315
  2. XARELTO [Concomitant]
     Active Substance: RIVAROXABAN
     Dosage: 10 MILLIGRAM, QD (1 TABLET IN THE MORNING)
  3. LUMIGAN [Concomitant]
     Active Substance: BIMATOPROST
     Dosage: 0.1 MILLIGRAM PER MILLILITRE, ONE DROP IN THE EVENING INTO THE EYES
  4. METFORMIN [Concomitant]
     Active Substance: METFORMIN HYDROCHLORIDE
     Dosage: 500 MILLIGRAM, TID (1 TABLET THREE TIMES PER DAY)
  5. INEXIUM [ESOMEPRAZOLE MAGNESIUM] [Concomitant]
     Active Substance: ESOMEPRAZOLE MAGNESIUM
     Dosage: 40 MILLIGRAM, QD (1 TABLET IN THE MORNING OR EVENING)
  6. AERUS [Concomitant]
     Dosage: 5 MILLIGRAM, QD (1 TABLET IN THE EVENING)
  7. CALCIUM VIT D [Concomitant]
     Active Substance: CALCIUM\CHOLECALCIFEROL
     Dosage: UNK

REACTIONS (12)
  - Respiratory disorder [Unknown]
  - Swelling of eyelid [Unknown]
  - Myalgia [Recovering/Resolving]
  - Vertigo [Recovering/Resolving]
  - Dizziness [Unknown]
  - Pharyngeal swelling [Recovering/Resolving]
  - Visual impairment [Unknown]
  - Hallucination [Recovering/Resolving]
  - Asphyxia [Recovering/Resolving]
  - Lymphadenopathy [Unknown]
  - Swelling face [Unknown]
  - Synovial cyst [Recovering/Resolving]

NARRATIVE: CASE EVENT DATE: 20190315
